FAERS Safety Report 8046539-1 (Version None)
Quarter: 2012Q1

REPORT INFORMATION
  Report Type: 
  Country: None (occurrence: None)
  Receive Date: 20120113
  Receipt Date: 20120110
  Transmission Date: 20120608
  Serious: Yes (Disabling)
  Sender: FDA-Public Use
  Company Number: CA-MERCK-1201USA01220

PATIENT
  Age: 42 Year
  Sex: Female
  Weight: 50 kg

DRUGS (3)
  1. CITALOPRAM [Concomitant]
     Route: 048
  2. SINEMET [Suspect]
     Route: 048
  3. TEMAZEPAM [Concomitant]
     Route: 048

REACTIONS (3)
  - CONCOMITANT DISEASE AGGRAVATED [None]
  - INSOMNIA [None]
  - SOMNOLENCE [None]
